FAERS Safety Report 5114118-1 (Version None)
Quarter: 2006Q3

REPORT INFORMATION
  Report Type: 
  Country: None (occurrence: None)
  Receive Date: 20060925
  Receipt Date: 20060918
  Transmission Date: 20061208
  Serious: Yes (Other)
  Sender: FDA-Public Use
  Company Number: DK-GLAXOSMITHKLINE-B0439265A

PATIENT
  Sex: Female

DRUGS (4)
  1. IMIGRAN [Suspect]
     Indication: MIGRAINE
     Route: 065
  2. ETODOLAC [Concomitant]
     Indication: ARTHRALGIA
     Dosage: 2TAB PER DAY
  3. BENADRYL [Concomitant]
     Indication: SEASONAL ALLERGY
  4. CLARITIN [Concomitant]
     Indication: SEASONAL ALLERGY

REACTIONS (4)
  - ARTHROPATHY [None]
  - BONE DISORDER [None]
  - FRACTURE [None]
  - LOWER LIMB FRACTURE [None]
